FAERS Safety Report 24765118 (Version 1)
Quarter: 2024Q4

REPORT INFORMATION
  Report Type: Spontaneous
  Country: US (occurrence: None)
  Receive Date: 20241219
  Receipt Date: 20241219
  Transmission Date: 20250115
  Serious: Yes (Life-Threatening, Hospitalization)
  Sender: Public
  Company Number: None

PATIENT
  Age: 76 Year
  Sex: Male
  Weight: 111 kg

DRUGS (1)
  1. EMPAGLIFLOZIN [Suspect]
     Active Substance: EMPAGLIFLOZIN
     Indication: Diabetes mellitus
     Dosage: OTHER FREQUENCY : AM;?
     Route: 048

REACTIONS (5)
  - Acute kidney injury [None]
  - Urinary tract infection [None]
  - Micturition urgency [None]
  - Sepsis [None]
  - Blood ketone body [None]

NARRATIVE: CASE EVENT DATE: 20240722
